FAERS Safety Report 11159108 (Version 1)
Quarter: 2015Q2

REPORT INFORMATION
  Report Type: Spontaneous
  Country: PL (occurrence: PL)
  Receive Date: 20150603
  Receipt Date: 20150603
  Transmission Date: 20150821
  Serious: Yes (Life-Threatening)
  Sender: FDA-Public Use
  Company Number: PL-TEVA-567217ISR

PATIENT
  Sex: Male
  Weight: 70 kg

DRUGS (2)
  1. CISPLATYNA [Suspect]
     Active Substance: CISPLATIN
     Indication: LUNG NEOPLASM MALIGNANT
     Route: 042
     Dates: start: 20130409, end: 20130409
  2. NAVELBINE [Suspect]
     Active Substance: VINORELBINE TARTRATE
     Indication: LUNG NEOPLASM MALIGNANT
     Route: 042
     Dates: start: 20130409, end: 20130409

REACTIONS (3)
  - Dyspnoea [Unknown]
  - Leukopenia [Unknown]
  - Granulocytopenia [Unknown]
